FAERS Safety Report 9587195 (Version 1)
Quarter: 2013Q4

REPORT INFORMATION
  Report Type: Spontaneous
  Country: CA (occurrence: CA)
  Receive Date: 20131003
  Receipt Date: 20131003
  Transmission Date: 20140711
  Serious: Yes (Other)
  Sender: FDA-Public Use
  Company Number: CA-GLAXOSMITHKLINE-A1042654A

PATIENT
  Sex: Male

DRUGS (1)
  1. VENTOLIN [Suspect]
     Indication: DYSPNOEA
     Route: 055
     Dates: start: 201301

REACTIONS (2)
  - Lung neoplasm malignant [Unknown]
  - Dyspnoea [Unknown]
